FAERS Safety Report 4634696-6 (Version None)
Quarter: 2005Q2

REPORT INFORMATION
  Report Type: 
  Country: None (occurrence: None)
  Receive Date: 20050412
  Receipt Date: 20050331
  Transmission Date: 20051028
  Serious: Yes (Death)
  Sender: FDA-Public Use
  Company Number: AZAUS200500108

PATIENT
  Age: 72 Year
  Sex: Male
  Weight: 83.0083 kg

DRUGS (2)
  1. VIDAZA [Suspect]
     Indication: MYELODYSPLASTIC SYNDROME
     Dosage: 150 MG (75 MG/M2, DAILY X 5 DAYS), SUBCUTANEOUS
     Route: 058
     Dates: start: 20050307, end: 20050311
  2. THALOMID [Suspect]
     Indication: MYELODYSPLASTIC SYNDROME
     Dosage: 50 MG (50 MG, DAILY), ORAL
     Route: 048
     Dates: start: 20050311

REACTIONS (17)
  - ABDOMINAL PAIN [None]
  - ACUTE ABDOMEN [None]
  - ADHESION [None]
  - CARDIAC OUTPUT DECREASED [None]
  - COMPUTERISED TOMOGRAM ABNORMAL [None]
  - ENTERITIS [None]
  - GASTROINTESTINAL DISORDER [None]
  - HAEMOGLOBIN DECREASED [None]
  - INTESTINAL OBSTRUCTION [None]
  - INTESTINAL PERFORATION [None]
  - NAUSEA [None]
  - OXYGEN SATURATION DECREASED [None]
  - PLATELET COUNT DECREASED [None]
  - SEPTIC SHOCK [None]
  - SWELLING [None]
  - VOMITING [None]
  - WHITE BLOOD CELL COUNT DECREASED [None]
